FAERS Safety Report 26183894 (Version 1)
Quarter: 2025Q4

REPORT INFORMATION
  Report Type: Spontaneous
  Country: BR (occurrence: BR)
  Receive Date: 20251222
  Receipt Date: 20251222
  Transmission Date: 20260118
  Serious: Yes (Hospitalization, Other)
  Sender: BAXTER
  Company Number: BR-BAXTER-2025BAX025809

PATIENT
  Age: 68 Year
  Sex: Female
  Weight: 65 kg

DRUGS (2)
  1. CYCLOPHOSPHAMIDE [Suspect]
     Active Substance: CYCLOPHOSPHAMIDE
     Dosage: 1006 MG
     Route: 065
  2. DOCETAXEL [Suspect]
     Active Substance: DOCETAXEL
     Dosage: 125 MG, EVERY 3 WK
     Route: 042
     Dates: start: 20251020

REACTIONS (8)
  - Skin hyperpigmentation [Recovering/Resolving]
  - Epidermal necrosis [Unknown]
  - Pruritus [Recovering/Resolving]
  - Rash erythematous [Recovering/Resolving]
  - Skin exfoliation [Unknown]
  - Rash maculo-papular [Unknown]
  - Skin lesion [Unknown]
  - Superficial inflammatory dermatosis [Unknown]

NARRATIVE: CASE EVENT DATE: 20251020
